FAERS Safety Report 7786984-2 (Version None)
Quarter: 2011Q3

REPORT INFORMATION
  Report Type: 
  Country: None (occurrence: None)
  Receive Date: 20110929
  Receipt Date: 20110923
  Transmission Date: 20111222
  Serious: Yes (Other)
  Sender: FDA-Public Use
  Company Number: CA-PFIZER INC-2011227044

PATIENT
  Age: 59 Year
  Sex: Female

DRUGS (8)
  1. XALATAN [Suspect]
     Indication: GLAUCOMA
     Dosage: 1 GTT IN BOTH EYES, 1X/DAY
     Route: 047
  2. CITALOPRAM [Concomitant]
     Indication: DEPRESSION
     Dosage: 20 MG, 1X/DAY
     Route: 048
     Dates: start: 20100101
  3. VENTOLIN HFA [Concomitant]
     Indication: ASTHMA
     Dosage: 2 PUFFS WHEN NEEDED
     Route: 055
  4. LIPITOR [Concomitant]
     Indication: BLOOD CHOLESTEROL INCREASED
     Dosage: 20 MG, 1X/DAY
  5. CORTISONE [Concomitant]
     Indication: PNEUMONITIS
     Dosage: UNK
  6. SPIRONOLACTONE [Concomitant]
     Indication: HYPERTENSION
     Dosage: 25 MG, 1X/DAY
  7. SYMBICORT [Concomitant]
     Indication: ASTHMA
     Dosage: 2 PUFFS 2X/DAY WHEN NEEDED
     Route: 055
  8. AVAPRO [Concomitant]
     Indication: HYPERTENSION
     Dosage: 75 MG, 1X/DAY

REACTIONS (2)
  - FALL [None]
  - MOBILITY DECREASED [None]
